FAERS Safety Report 26001380 (Version 3)
Quarter: 2025Q4

REPORT INFORMATION
  Report Type: Spontaneous
  Country: US (occurrence: US)
  Receive Date: 20251105
  Receipt Date: 20251111
  Transmission Date: 20260117
  Serious: No
  Sender: PFIZER
  Company Number: US-PFIZER INC-202500216591

PATIENT
  Sex: Female

DRUGS (1)
  1. PAXLOVID [Suspect]
     Active Substance: NIRMATRELVIR\RITONAVIR
     Indication: COVID-19 treatment
     Dosage: 1 RITONAVIR AND 1 NIRMATRELVIR (150 MG DOSE) / HALF THE DOSE
     Route: 048

REACTIONS (2)
  - Fatigue [Unknown]
  - Incorrect dose administered [Unknown]
